FAERS Safety Report 21321098 (Version 2)
Quarter: 2022Q4

REPORT INFORMATION
  Report Type: Spontaneous
  Country: JP (occurrence: JP)
  Receive Date: 20220912
  Receipt Date: 20221014
  Transmission Date: 20230112
  Serious: Yes (Other)
  Sender: FDA-Public Use
  Company Number: JP-CHUGAI-2022034338

PATIENT
  Age: 79 Year

DRUGS (4)
  1. TECENTRIQ [Suspect]
     Active Substance: ATEZOLIZUMAB
     Indication: Hepatocellular carcinoma
     Dosage: 1200 MILLIGRAM, ONCE/MONTH
     Route: 041
     Dates: start: 20210901
  2. TECENTRIQ [Suspect]
     Active Substance: ATEZOLIZUMAB
     Dosage: 1200 MILLIGRAM, ONCE/MONTH
     Route: 041
     Dates: start: 20220901, end: 20221006
  3. AVASTIN [Suspect]
     Active Substance: BEVACIZUMAB
     Indication: Hepatocellular carcinoma
     Dosage: 600 MILLIGRAM, ONCE/MONTH
     Route: 041
     Dates: start: 20210901
  4. AVASTIN [Suspect]
     Active Substance: BEVACIZUMAB
     Dosage: 600 MILLIGRAM, ONCE/MONTH
     Route: 041
     Dates: start: 20220901, end: 20221006

REACTIONS (1)
  - Adrenal insufficiency [Recovered/Resolved]

NARRATIVE: CASE EVENT DATE: 20220407
